FAERS Safety Report 9910162 (Version 1)
Quarter: 2014Q1

REPORT INFORMATION
  Report Type: Spontaneous
  Country: US (occurrence: None)
  Receive Date: 20140218
  Receipt Date: 20140218
  Transmission Date: 20141002
  Serious: Yes (Life-Threatening, Hospitalization, Disabling, Other)
  Sender: FDA-Public Use
  Company Number: None

PATIENT
  Age: 49 Year
  Sex: Male
  Weight: 147.42 kg

DRUGS (1)
  1. ANDROGEL [Suspect]
     Indication: BLOOD TESTOSTERONE DECREASED
     Dosage: 2 PUMPS ?ONCE DAILY ?AOOKUED TI A SURFACE, USUALLY THE SKIN
     Route: 061
     Dates: start: 2005, end: 201207

REACTIONS (2)
  - Transient ischaemic attack [None]
  - Pulmonary embolism [None]
